FAERS Safety Report 11300310 (Version 1)
Quarter: 2015Q3

REPORT INFORMATION
  Report Type: Spontaneous
  Country: US (occurrence: US)
  Receive Date: 20150722
  Receipt Date: 20150722
  Transmission Date: 20151125
  Serious: Yes (Other)
  Sender: FDA-Public Use
  Company Number: US-ELI_LILLY_AND_COMPANY-US201307000259

PATIENT
  Sex: Male
  Weight: 117 kg

DRUGS (3)
  1. XARELTO [Concomitant]
     Active Substance: RIVAROXABAN
  2. ASA [Concomitant]
     Active Substance: ASPIRIN
  3. EFFIENT [Suspect]
     Active Substance: PRASUGREL HYDROCHLORIDE
     Indication: ARTERIOSCLEROSIS CORONARY ARTERY
     Dosage: 10 MG, QD
     Route: 048

REACTIONS (3)
  - Haemorrhage [Recovering/Resolving]
  - Injury [Recovering/Resolving]
  - Haematoma [Recovering/Resolving]
